FAERS Safety Report 14190452 (Version 1)
Quarter: 2017Q4

REPORT INFORMATION
  Report Type: Spontaneous
  Country: HK (occurrence: HK)
  Receive Date: 20171115
  Receipt Date: 20171115
  Transmission Date: 20180321
  Serious: Yes (Hospitalization)
  Sender: FDA-Public Use
  Company Number: HK-SA-2012-02121

PATIENT
  Age: 71 Year
  Sex: Male

DRUGS (2)
  1. BCG FOR IMMUNOTHERAPY [Suspect]
     Active Substance: BACILLUS CALMETTE-GUERIN ANTIGEN, UNSPECIFIED SUBSTRAIN
     Indication: BLADDER CANCER
     Route: 043
     Dates: start: 20080228, end: 20080228
  2. BCG FOR IMMUNOTHERAPY [Suspect]
     Active Substance: BACILLUS CALMETTE-GUERIN ANTIGEN, UNSPECIFIED SUBSTRAIN
     Indication: BLADDER CANCER
     Route: 043
     Dates: start: 20080819, end: 20080819

REACTIONS (7)
  - Prostatomegaly [Recovered/Resolved]
  - Perineal pain [Recovered/Resolved]
  - Prostatitis [Recovered/Resolved]
  - Urinary retention [Recovered/Resolved]
  - Prostate tenderness [Recovered/Resolved]
  - Prostatic abscess [Recovered/Resolved]
  - Perineal disorder [Recovered/Resolved]

NARRATIVE: CASE EVENT DATE: 20081008
